FAERS Safety Report 9832890 (Version 1)
Quarter: 2014Q1

REPORT INFORMATION
  Report Type: Spontaneous
  Country: US (occurrence: US)
  Receive Date: 20140121
  Receipt Date: 20140121
  Transmission Date: 20141002
  Serious: No
  Sender: FDA-Public Use
  Company Number: US-PFIZER INC-2014015521

PATIENT
  Age: 65 Year
  Sex: Female

DRUGS (2)
  1. DEXAMETHASONE SODIUM PHOSPHATE [Suspect]
     Dosage: 4 MG, 2X/DAY
     Route: 048
  2. DEXAMETHASONE SODIUM PHOSPHATE [Suspect]
     Dosage: 1 MG, 3X/DAY

REACTIONS (1)
  - Myopathy [Unknown]
